FAERS Safety Report 5595114-7 (Version None)
Quarter: 2008Q1

REPORT INFORMATION
  Report Type: 
  Country: None (occurrence: None)
  Receive Date: 20080117
  Receipt Date: 20080115
  Transmission Date: 20080703
  Serious: Yes (Life-Threatening, Hospitalization)
  Sender: FDA-Public Use
  Company Number: ES-BOEHRINGER INGELHEIM PHARMACEUTICALS, INC.-2008-ES-00008ES

PATIENT
  Sex: Male

DRUGS (4)
  1. APTIVUS [Suspect]
     Indication: HIV INFECTION
     Route: 048
     Dates: start: 20070728, end: 20070907
  2. FTC [Concomitant]
     Indication: HIV INFECTION
     Route: 048
     Dates: start: 20070728, end: 20070907
  3. TENOFOVIR [Concomitant]
     Indication: HIV INFECTION
     Route: 048
     Dates: start: 20070728, end: 20070907
  4. DDI [Concomitant]
     Indication: HIV INFECTION
     Route: 048
     Dates: start: 20070728, end: 20070907

REACTIONS (4)
  - BLOOD ALBUMIN DECREASED [None]
  - HEPATOSPLENOMEGALY [None]
  - HYPERBILIRUBINAEMIA [None]
  - PROTHROMBIN LEVEL DECREASED [None]
